FAERS Safety Report 5504208-3 (Version None)
Quarter: 2007Q4

REPORT INFORMATION
  Report Type: 
  Country: None (occurrence: None)
  Receive Date: 20071101
  Receipt Date: 20071024
  Transmission Date: 20080405
  Serious: Yes (Hospitalization)
  Sender: FDA-Public Use
  Company Number: B0493510A

PATIENT
  Age: 35 Year
  Sex: Male

DRUGS (10)
  1. COMBIVIR [Suspect]
     Indication: HIV INFECTION
     Route: 048
  2. TENOFOVIR DISOPROXIL FUMARATE [Suspect]
     Indication: HIV INFECTION
  3. COTRIMOXAZOLE [Suspect]
     Indication: PROPHYLAXIS
  4. FLUCONAZOLE [Concomitant]
  5. RIFAMPIN [Concomitant]
  6. ETHAMBUTOL HCL [Concomitant]
  7. TRIMAZIDE [Concomitant]
  8. PYRAZINAMIDE [Concomitant]
  9. STAVUDINE [Concomitant]
  10. LAMIVUDINE [Concomitant]

REACTIONS (1)
  - PANCYTOPENIA [None]
